FAERS Safety Report 21644738 (Version 1)
Quarter: 2022Q4

REPORT INFORMATION
  Report Type: Other
  Country: US (occurrence: None)
  Receive Date: 20221125
  Receipt Date: 20221125
  Transmission Date: 20230112
  Serious: Yes (Other)
  Sender: FDA-Public Use
  Company Number: US-ROCHE-3223289

PATIENT
  Age: 75 Year
  Sex: Male

DRUGS (1)
  1. ESBRIET [Suspect]
     Active Substance: PIRFENIDONE
     Indication: Pulmonary fibrosis
     Dosage: TAKE 1 TABLET 3 TIMES A DAY FOR 2 WEEK(S) THEN INCREASE TO TWO?TABLETS BY MOUTH 3 TIMES A DAY
     Route: 048

REACTIONS (2)
  - Confusional state [Unknown]
  - Pneumonia [Unknown]
